FAERS Safety Report 8525805-7 (Version None)
Quarter: 2012Q3

REPORT INFORMATION
  Report Type: 
  Country: None (occurrence: None)
  Receive Date: 20120720
  Receipt Date: 20120709
  Transmission Date: 20120928
  Serious: No
  Sender: FDA-Public Use
  Company Number: US-ASTRAZENECA-2011SE34229

PATIENT
  Age: 47 Year
  Sex: Male

DRUGS (2)
  1. NEXIUM [Suspect]
     Route: 048
  2. PRILOSEC OTC [Suspect]
     Route: 048

REACTIONS (6)
  - DYSPHAGIA [None]
  - DRUG DOSE OMISSION [None]
  - ADVERSE EVENT [None]
  - CHEST PAIN [None]
  - PAIN [None]
  - GASTROOESOPHAGEAL REFLUX DISEASE [None]
